FAERS Safety Report 9501040 (Version 1)
Quarter: 2013Q1

REPORT INFORMATION
  Report Type: Spontaneous
  Country: US (occurrence: None)
  Receive Date: 20130107
  Receipt Date: 20130107
  Transmission Date: 20140127
  Serious: No
  Sender: FDA-Public Use
  Company Number: PHEH2012US019540

PATIENT
  Age: 26 Year
  Sex: Female

DRUGS (3)
  1. GILENYA [Suspect]
     Indication: MULTIPLE SCLEROSIS
     Route: 048
     Dates: start: 20121002
  2. ANTIBIOTICS (NO INGRIDIENTS/SUBSTANCES) [Concomitant]
  3. STEROIDS NOS (NO INGRIDIENTS/SUBSTANCES) [Concomitant]

REACTIONS (5)
  - Stomatitis [None]
  - Rhinorrhoea [None]
  - Sneezing [None]
  - Cough [None]
  - Concomitant disease aggravated [None]
